FAERS Safety Report 15057118 (Version 1)
Quarter: 2018Q2

REPORT INFORMATION
  Report Type: Report from Study
  Country: CA (occurrence: CA)
  Receive Date: 20180624
  Receipt Date: 20180624
  Transmission Date: 20180711
  Serious: No
  Sender: FDA-Public Use
  Company Number: CA-BIOVERATIV-2018BV000386

PATIENT
  Age: 65 Year
  Sex: Male

DRUGS (1)
  1. ALPROLIX [Suspect]
     Active Substance: EFTRENONACOG ALFA
     Indication: PRODUCT USED FOR UNKNOWN INDICATION
     Dosage: 1167 IU 1 VIAL?3156 IU ?PERIPHERAL IV
     Route: 042
     Dates: start: 20180615

REACTIONS (2)
  - Joint swelling [Unknown]
  - Injection [Recovered/Resolved]

NARRATIVE: CASE EVENT DATE: 20180614
